FAERS Safety Report 5161404-5 (Version None)
Quarter: 2006Q4

REPORT INFORMATION
  Report Type: 
  Country: None (occurrence: None)
  Receive Date: 20061130
  Receipt Date: 20061121
  Transmission Date: 20070319
  Serious: Yes (Hospitalization)
  Sender: FDA-Public Use
  Company Number: US-ROCHE-472701

PATIENT
  Age: 38 Year
  Sex: Female

DRUGS (2)
  1. VALIUM [Suspect]
     Indication: CEREBRAL PALSY
     Route: 065
  2. BACLOFEN [Concomitant]
     Route: 065

REACTIONS (1)
  - DELIRIUM [None]
